FAERS Safety Report 21089674 (Version 2)
Quarter: 2022Q3

REPORT INFORMATION
  Report Type: Spontaneous
  Country: HR (occurrence: HR)
  Receive Date: 20220715
  Receipt Date: 20220729
  Transmission Date: 20221026
  Serious: Yes (Other)
  Sender: FDA-Public Use
  Company Number: HR-TEVA-2022-HR-2053877

PATIENT
  Age: 69 Year
  Sex: Female

DRUGS (5)
  1. FULVESTRANT [Suspect]
     Active Substance: FULVESTRANT
     Indication: Breast cancer metastatic
     Dosage: DAYS 1 AND 15 OF CYCLE 1 AND THEN ON DAY 1 OF SUBSEQUENT 28-DAY CYCLES
     Route: 030
     Dates: start: 201905
  2. LETROZOLE [Suspect]
     Active Substance: LETROZOLE
     Indication: Breast cancer metastatic
     Dosage: 2.5 MILLIGRAM DAILY;
     Route: 065
     Dates: start: 201806
  3. ZOLEDRONIC ACID [Suspect]
     Active Substance: ZOLEDRONIC ACID
     Indication: Breast cancer metastatic
     Route: 042
     Dates: start: 201806
  4. PALBOCICLIB [Suspect]
     Active Substance: PALBOCICLIB
     Indication: Breast cancer metastatic
     Dosage: 125 MILLIGRAM DAILY; FOLLOWED BY A WEEK OFF OVER 28-DAY CYCLES AND 18 CYCLES OF THERAPY UNTIL OCTOBE
     Route: 065
     Dates: start: 201905
  5. EXEMESTANE [Suspect]
     Active Substance: EXEMESTANE
     Indication: Breast cancer metastatic
     Route: 065

REACTIONS (2)
  - Drug ineffective [Unknown]
  - Neutropenia [Unknown]
